FAERS Safety Report 10715006 (Version 1)
Quarter: 2015Q1

REPORT INFORMATION
  Report Type: Spontaneous
  Country: US (occurrence: US)
  Receive Date: 20150115
  Receipt Date: 20150115
  Transmission Date: 20150721
  Serious: No
  Sender: FDA-Public Use
  Company Number: US-GLAXOSMITHKLINE-US2014037012

PATIENT
  Age: 50 Year
  Sex: Female

DRUGS (1)
  1. NICODERM CQ [Suspect]
     Active Substance: NICOTINE
     Indication: SMOKING CESSATION THERAPY
     Dosage: 21 MG, UNK
     Route: 062
     Dates: start: 201412, end: 20141214

REACTIONS (6)
  - Dizziness [Recovered/Resolved]
  - Accidental exposure to product [Unknown]
  - Product quality issue [Unknown]
  - Nausea [Recovered/Resolved]
  - Dysgeusia [Recovered/Resolved]
  - Drug ineffective [Unknown]
